FAERS Safety Report 5880658-0 (Version None)
Quarter: 2008Q3

REPORT INFORMATION
  Report Type: 
  Country: None (occurrence: None)
  Receive Date: 20080912
  Receipt Date: 20080604
  Transmission Date: 20090109
  Serious: No
  Sender: FDA-Public Use
  Company Number: US-ABBOTT-08P-163-0455246-00

PATIENT
  Sex: Male
  Weight: 93.07 kg

DRUGS (6)
  1. HUMIRA [Suspect]
     Indication: PSORIATIC ARTHROPATHY
     Route: 058
     Dates: start: 20070601
  2. NAPROXEN [Concomitant]
     Indication: PAIN
     Route: 048
     Dates: start: 19950101
  3. METHOTREXATE [Concomitant]
     Indication: PSORIATIC ARTHROPATHY
     Route: 048
     Dates: start: 19950101
  4. FOLIC ACID [Concomitant]
     Indication: VITAMIN SUPPLEMENTATION
     Route: 048
     Dates: start: 20040101
  5. RANITIDINE HYDROCHLORIDE [Concomitant]
     Indication: GASTRIC DISORDER
     Route: 048
     Dates: start: 19950101
  6. ANTIHISTAMINES [Concomitant]
     Indication: HYPERSENSITIVITY
     Route: 048
     Dates: start: 19950101

REACTIONS (1)
  - PROCEDURAL COMPLICATION [None]
